FAERS Safety Report 8823085 (Version 3)
Quarter: 2013Q2

REPORT INFORMATION
  Report Type: Report from Study
  Country: BR (occurrence: BR)
  Receive Date: 20121003
  Receipt Date: 20130624
  Transmission Date: 20140414
  Serious: Yes (Hospitalization, Other)
  Sender: FDA-Public Use
  Company Number: BR-ROCHE-1140655

PATIENT
  Sex: Female
  Weight: 52 kg

DRUGS (5)
  1. MABTHERA [Suspect]
     Indication: RHEUMATOID ARTHRITIS
     Route: 042
     Dates: start: 20120401
  2. HUMIRA [Suspect]
     Indication: RHEUMATOID ARTHRITIS
     Route: 065
  3. INTERFERON ALFA-2A [Suspect]
     Indication: HEPATITIS C
     Route: 065
  4. PREDNISOLONE [Concomitant]
     Indication: RHEUMATOID ARTHRITIS
     Route: 048
  5. HYDROXYCHLOROQUINE [Concomitant]
     Indication: RHEUMATOID ARTHRITIS
     Route: 048

REACTIONS (9)
  - Lymphopenia [Not Recovered/Not Resolved]
  - Urinary tract infection [Recovered/Resolved]
  - Opportunistic infection [Recovered/Resolved]
  - Decreased immune responsiveness [Unknown]
  - Nail infection [Recovered/Resolved]
  - B-lymphocyte count decreased [Not Recovered/Not Resolved]
  - Lymphadenopathy [Recovered/Resolved]
  - Hepatomegaly [Recovered/Resolved]
  - Lymphadenopathy mediastinal [Recovered/Resolved]
